FAERS Safety Report 8132021-X (Version None)
Quarter: 2012Q1

REPORT INFORMATION
  Report Type: 
  Country: None (occurrence: None)
  Receive Date: 20120213
  Receipt Date: 20120207
  Transmission Date: 20120608
  Serious: Yes (Other)
  Sender: FDA-Public Use
  Company Number: US-BAYER-2010-005889

PATIENT
  Age: 28 Year
  Sex: Female
  Weight: 97.959 kg

DRUGS (2)
  1. HYDROCHLOROTHIAZIDE [Concomitant]
  2. MIRENA [Suspect]
     Indication: CONTRACEPTION
     Dosage: 20 ?G, CONT
     Route: 015
     Dates: start: 20080822, end: 20100103

REACTIONS (3)
  - PREGNANCY WITH CONTRACEPTIVE DEVICE [None]
  - DEVICE DISLOCATION [None]
  - CAESAREAN SECTION [None]
